FAERS Safety Report 22628903 (Version 1)
Quarter: 2023Q2

REPORT INFORMATION
  Report Type: Spontaneous
  Country: CH (occurrence: CH)
  Receive Date: 20230622
  Receipt Date: 20230622
  Transmission Date: 20230722
  Serious: Yes (Other)
  Sender: FDA-Public Use
  Company Number: CH-Eisai Medical Research-EC-2023-142527

PATIENT
  Age: 64 Year
  Sex: Male

DRUGS (40)
  1. FYCOMPA [Suspect]
     Active Substance: PERAMPANEL
     Indication: Epilepsy
     Route: 048
     Dates: start: 20230331, end: 2023
  2. FYCOMPA [Suspect]
     Active Substance: PERAMPANEL
     Indication: Encephalitis
     Route: 048
     Dates: start: 20230514, end: 20230517
  3. BACTRIM [Suspect]
     Active Substance: SULFAMETHOXAZOLE\TRIMETHOPRIM
     Indication: Encephalitis
     Dosage: DOSE AND FREQUENCY UNKNOWN
     Dates: start: 20230411
  4. PHENYTOIN [Suspect]
     Active Substance: PHENYTOIN
     Indication: Encephalitis
     Dosage: DOSE AND FREQUENCY UNKNOWN
     Dates: start: 20230402, end: 202304
  5. PHENYTOIN [Suspect]
     Active Substance: PHENYTOIN
     Dosage: DOSE AND FREQUENCY UNKNOWN
     Dates: start: 20230423, end: 20230424
  6. PHENYTOIN [Suspect]
     Active Substance: PHENYTOIN
     Dosage: FREQUENCY UNKNOWN
     Dates: start: 20230511, end: 20230511
  7. PHENYTOIN [Suspect]
     Active Substance: PHENYTOIN
     Dosage: FREQUENCY UNKNOWN
     Dates: start: 20230512, end: 20230512
  8. PHENYTOIN [Suspect]
     Active Substance: PHENYTOIN
     Dosage: FREQUENCY UNKNOWN
     Dates: start: 20230517, end: 20230517
  9. LEVETIRACETAM [Suspect]
     Active Substance: LEVETIRACETAM
     Indication: Encephalitis
     Dates: start: 20230330, end: 2023
  10. LEVETIRACETAM [Suspect]
     Active Substance: LEVETIRACETAM
     Dosage: 1000MG AND 500MG
     Route: 048
     Dates: start: 20230511, end: 20230517
  11. DAFALGAN [Suspect]
     Active Substance: ACETAMINOPHEN
     Indication: Product used for unknown indication
     Route: 048
     Dates: start: 202304, end: 202304
  12. DAFALGAN [Suspect]
     Active Substance: ACETAMINOPHEN
     Dosage: DOSE AND FREQUENCY UNKNOWN
     Route: 048
     Dates: start: 202305
  13. METAMIZOLE [Suspect]
     Active Substance: METAMIZOLE
     Indication: Pyrexia
     Dosage: ORALLY IN CASE OF FEVER
     Route: 048
     Dates: start: 202304, end: 2023
  14. METAMIZOLE [Suspect]
     Active Substance: METAMIZOLE
     Indication: Pneumonia
     Dosage: OCCASIONALLY, DOSE UNKNOWN
     Route: 048
     Dates: start: 202305
  15. HEPARIN [Suspect]
     Active Substance: HEPARIN SODIUM
     Indication: Pneumonia
     Dosage: DOSE AND FREQUENCY UNKNOWN
     Dates: start: 202304
  16. VIMPAT [Suspect]
     Active Substance: LACOSAMIDE
     Indication: Product used for unknown indication
     Dosage: DOSE AND FREQUENCY UNKNOWN
     Route: 048
     Dates: start: 20230331, end: 20230403
  17. VIMPAT [Suspect]
     Active Substance: LACOSAMIDE
     Route: 048
     Dates: start: 20230512, end: 20230517
  18. DEXAMETHASONE [Concomitant]
     Active Substance: DEXAMETHASONE
     Indication: Encephalitis
     Dosage: DOSE AND FREQUENCY UNKNOWN
     Dates: start: 20230403, end: 20230404
  19. SOLU MEDIRN [Concomitant]
     Indication: Encephalitis
     Dates: start: 20230404, end: 20230411
  20. SOLU MEDIRN [Concomitant]
     Indication: Pneumonia
     Dates: start: 20230412
  21. TOPIRAMATE [Concomitant]
     Active Substance: TOPIRAMATE
     Indication: Encephalitis
     Dosage: DOSE AND FREQUENCY UNKNOWN
     Route: 048
     Dates: start: 20230403, end: 202304
  22. TOPIRAMATE [Concomitant]
     Active Substance: TOPIRAMATE
     Route: 048
     Dates: start: 20230511, end: 20230517
  23. FLUDROCORTISONE [Concomitant]
     Active Substance: FLUDROCORTISONE
     Indication: Encephalitis
     Dates: start: 2023
  24. FENTANYL [Concomitant]
     Active Substance: FENTANYL
     Indication: Encephalitis
     Dosage: DOSE AND FREQUENCY UNKNOWN
     Route: 040
     Dates: start: 2023
  25. URAPIDIL [Concomitant]
     Active Substance: URAPIDIL
     Indication: Encephalitis
     Dosage: DOSE UNKNOWN, OCCASIONALLY
     Dates: start: 2023
  26. AMOXICILLIN [Concomitant]
     Active Substance: AMOXICILLIN
     Indication: Encephalitis
     Dosage: DOSE AND FREQUENCY UNKNOWN
     Dates: start: 20230401, end: 20230404
  27. INSULIN NOS [Concomitant]
     Active Substance: INSULIN NOS
     Indication: Pneumonia
     Dosage: DOSE AND FREQUENCY UNKNOWN
     Dates: start: 2023
  28. PROPOFOL [Concomitant]
     Active Substance: PROPOFOL
     Indication: Pneumonia
     Dosage: DOSE AND FREQUENCY UNKNOWN
     Dates: end: 20230421
  29. PROPOFOL [Concomitant]
     Active Substance: PROPOFOL
     Dates: end: 20230421
  30. CLONAZEPAM [Concomitant]
     Active Substance: CLONAZEPAM
     Indication: Product used for unknown indication
     Dosage: DOSE AND FREQUENCY UNKNOWN
     Dates: start: 20230421
  31. PIPERACILLIN SODIUM\TAZOBACTAM SODIUM [Concomitant]
     Active Substance: PIPERACILLIN SODIUM\TAZOBACTAM SODIUM
     Indication: Product used for unknown indication
     Dosage: DOSE AND FREQUENCY UNKNOWN
     Dates: start: 20230420, end: 20230422
  32. CEFTRIAXONE [Concomitant]
     Active Substance: CEFTRIAXONE
     Indication: Product used for unknown indication
     Dosage: DOSE AND FREQUENCY UNKNOWN
     Dates: start: 20230402, end: 20230404
  33. CALCIMAGON D3 FORTE [Concomitant]
     Indication: Product used for unknown indication
     Dosage: DOSE AND FREQUENCY UNKNOWN
     Route: 048
     Dates: start: 2023
  34. ISOSOURCE PROTEIN LIQUID [Concomitant]
     Indication: Product used for unknown indication
     Dosage: DOSE AND FREQUENCY UNKNOWN
     Dates: start: 2023
  35. LAXIPEG [Concomitant]
     Indication: Product used for unknown indication
     Dosage: DOSE UNKNOWN, OCCASIONALLY
     Route: 048
  36. MIDAZOLAM [Concomitant]
     Active Substance: MIDAZOLAM
     Indication: Product used for unknown indication
     Dosage: DOSE UNKNOWN, OCCASIONALLY
     Route: 045
  37. VALVERDE SCHLAF [Concomitant]
     Indication: Product used for unknown indication
     Dosage: DOSE UNKNOWN, OCCASIONALLY
  38. BISACODYL [Concomitant]
     Active Substance: BISACODYL
     Indication: Product used for unknown indication
     Dosage: DOSE UNKNOWN, OCCASIONALLY
  39. SODIUM CITRATE\SODIUM LAURYL SULFOACETATE\SORBITOL [Concomitant]
     Active Substance: SODIUM CITRATE\SODIUM LAURYL SULFOACETATE\SORBITOL
     Indication: Product used for unknown indication
     Dosage: DOSE UNKNOWN, OCCASIONALLY
  40. MORPHINE [Concomitant]
     Active Substance: MORPHINE
     Indication: Product used for unknown indication
     Dosage: DOSE AND FREQUENCY UNKNOWN
     Dates: end: 20230421

REACTIONS (1)
  - Drug-induced liver injury [Recovering/Resolving]

NARRATIVE: CASE EVENT DATE: 20230425
